FAERS Safety Report 16443305 (Version 1)
Quarter: 2019Q2

REPORT INFORMATION
  Report Type: Spontaneous
  Country: FR (occurrence: FR)
  Receive Date: 20190618
  Receipt Date: 20190618
  Transmission Date: 20190711
  Serious: Yes (Other)
  Sender: FDA-Public Use
  Company Number: FR-SHILPA MEDICARE LIMITED-SML-FR-2019-00140

PATIENT
  Age: 38 Year

DRUGS (2)
  1. IMATINIB, UNKNOWN [Suspect]
     Active Substance: IMATINIB
     Indication: FIBROMATOSIS
     Dosage: UNK
     Route: 065
  2. IMATINIB, UNKNOWN [Suspect]
     Active Substance: IMATINIB
     Indication: FIBROMATOSIS
     Dosage: UNK
     Route: 065

REACTIONS (3)
  - Neoplasm progression [Recovered/Resolved]
  - Product use in unapproved indication [Unknown]
  - Fibromatosis [Recovered/Resolved]
